FAERS Safety Report 4592694-5 (Version None)
Quarter: 2005Q1

REPORT INFORMATION
  Report Type: 
  Country: None (occurrence: None)
  Receive Date: 20050222
  Receipt Date: 20050215
  Transmission Date: 20050727
  Serious: Yes (Hospitalization)
  Sender: FDA-Public Use
  Company Number: 2005-02-0877

PATIENT
  Sex: Male

DRUGS (8)
  1. IMDUR [Suspect]
     Dosage: ORAL
     Route: 048
  2. VIOXX [Suspect]
     Indication: ARTHRALGIA
     Dosage: 12.5 MG QD ORAL
     Route: 048
  3. LIPITOR [Concomitant]
  4. METOPROLOL TARTRATE [Concomitant]
  5. PLAVIX [Concomitant]
  6. RIVOTRIL [Concomitant]
  7. TEGRETOL [Concomitant]
  8. TELMISARTAN [Concomitant]

REACTIONS (1)
  - LOSS OF CONSCIOUSNESS [None]
